FAERS Safety Report 15498259 (Version 1)
Quarter: 2018Q4

REPORT INFORMATION
  Report Type: Spontaneous
  Country: US (occurrence: US)
  Receive Date: 20181015
  Receipt Date: 20181015
  Transmission Date: 20190205
  Serious: Yes (Other)
  Sender: FDA-Public Use
  Company Number: US-BAYER-2018-190413

PATIENT
  Age: 64 Year
  Sex: Female

DRUGS (1)
  1. BETASERON [Suspect]
     Active Substance: INTERFERON BETA-1B
     Indication: MULTIPLE SCLEROSIS
     Dosage: 0.3 MG, UNK

REACTIONS (5)
  - Skin mass [None]
  - Pain [None]
  - Pain in extremity [Recovering/Resolving]
  - Multiple sclerosis [None]
  - Vascular pain [Recovering/Resolving]

NARRATIVE: CASE EVENT DATE: 201810
